FAERS Safety Report 14260011 (Version 1)
Quarter: 2017Q4

REPORT INFORMATION
  Report Type: Spontaneous
  Country: US (occurrence: US)
  Receive Date: 20171207
  Receipt Date: 20171207
  Transmission Date: 20180321
  Serious: No
  Sender: FDA-Public Use
  Company Number: US-VIFOR (INTERNATIONAL) INC.-VIT-2017-08048

PATIENT
  Sex: Male

DRUGS (10)
  1. COLECALCIFEROL [Concomitant]
     Active Substance: CHOLECALCIFEROL
  2. LOVASTATIN. [Concomitant]
     Active Substance: LOVASTATIN
  3. FENOFIBRATE. [Concomitant]
     Active Substance: FENOFIBRATE
  4. CALCIUM [Concomitant]
     Active Substance: CALCIUM
  5. VELTASSA [Suspect]
     Active Substance: PATIROMER
     Indication: HYPERKALAEMIA
  6. PANTOPRAZOLE SODIUM SESQUIHYDRATE [Concomitant]
     Active Substance: PANTOPRAZOLE SODIUM
  7. LISINOPRIL. [Concomitant]
     Active Substance: LISINOPRIL
  8. ACETYLSALICYLIC ACID [Concomitant]
     Active Substance: ASPIRIN
  9. GLIPIZIDE. [Concomitant]
     Active Substance: GLIPIZIDE
  10. CARVEDILOL. [Concomitant]
     Active Substance: CARVEDILOL

REACTIONS (1)
  - Frequent bowel movements [Unknown]
